FAERS Safety Report 21159667 (Version 7)
Quarter: 2024Q2

REPORT INFORMATION
  Report Type: Report from Study
  Country: CA (occurrence: CA)
  Receive Date: 20220802
  Receipt Date: 20240409
  Transmission Date: 20240716
  Serious: Yes (Other)
  Sender: FDA-Public Use
  Company Number: CA-TAKEDA-2022TUS036185

PATIENT
  Sex: Male

DRUGS (10)
  1. VEDOLIZUMAB [Suspect]
     Active Substance: VEDOLIZUMAB
     Indication: Crohn^s disease
     Dosage: 300 MILLIGRAM
     Route: 042
     Dates: start: 20160616
  2. VEDOLIZUMAB [Suspect]
     Active Substance: VEDOLIZUMAB
     Dosage: 300 MILLIGRAM
     Route: 042
     Dates: end: 20240401
  3. HIZENTRA [Concomitant]
     Active Substance: HUMAN IMMUNOGLOBULIN G
     Dosage: 10 MILLILITER, QD
  4. TRAZODONE [Concomitant]
     Active Substance: TRAZODONE HYDROCHLORIDE
     Dosage: 150 MILLIGRAM, QD
  5. ZOPICLONE [Concomitant]
     Active Substance: ZOPICLONE
     Dosage: UNK UNK, QD
  6. AMITRIPTYLINE [Concomitant]
     Active Substance: AMITRIPTYLINE
     Dosage: UNK UNK, QD
  7. TRYPTOPHAN [Concomitant]
     Active Substance: TRYPTOPHAN
     Dosage: UNK UNK, QD
  8. LOSEC [Concomitant]
     Active Substance: OMEPRAZOLE
     Dosage: 20 MILLIGRAM, BID
  9. CODEINE SULFATE [Concomitant]
     Active Substance: CODEINE SULFATE
     Dosage: 50 MILLIGRAM, BID
  10. TIAZAC [Concomitant]
     Active Substance: DILTIAZEM HYDROCHLORIDE
     Dosage: 180 MILLIGRAM, BID

REACTIONS (8)
  - Waldenstrom^s macroglobulinaemia [Unknown]
  - Sleep apnoea syndrome [Unknown]
  - Hand fracture [Unknown]
  - Osteoarthritis [Unknown]
  - Drug ineffective [Unknown]
  - Malaise [Unknown]
  - Diarrhoea [Unknown]
  - Abdominal pain [Unknown]
